FAERS Safety Report 11836636 (Version 2)
Quarter: 2015Q4

REPORT INFORMATION
  Report Type: Spontaneous
  Country: FR (occurrence: FR)
  Receive Date: 20151215
  Receipt Date: 20151217
  Transmission Date: 20160305
  Serious: Yes (Death, Hospitalization)
  Sender: FDA-Public Use
  Company Number: FR-JNJFOC-20151206509

PATIENT
  Age: 86 Year
  Sex: Male

DRUGS (5)
  1. CASODEX [Suspect]
     Active Substance: BICALUTAMIDE
     Indication: HORMONE THERAPY
     Route: 065
     Dates: start: 20141215, end: 20141229
  2. CASODEX [Suspect]
     Active Substance: BICALUTAMIDE
     Indication: PROSTATE CANCER
     Route: 065
     Dates: start: 20141215, end: 20141229
  3. DECAPEPTYL [Suspect]
     Active Substance: TRIPTORELIN ACETATE
     Indication: HORMONE THERAPY
     Route: 065
     Dates: start: 20141215, end: 20141229
  4. DECAPEPTYL [Suspect]
     Active Substance: TRIPTORELIN ACETATE
     Indication: PROSTATE CANCER
     Route: 065
     Dates: start: 20141215, end: 20141229
  5. DUROGESIC [Suspect]
     Active Substance: FENTANYL
     Indication: PAIN
     Route: 062
     Dates: start: 201412, end: 20141229

REACTIONS (1)
  - Hepatitis fulminant [Fatal]

NARRATIVE: CASE EVENT DATE: 20141224
